FAERS Safety Report 11778767 (Version 2)
Quarter: 2015Q4

REPORT INFORMATION
  Report Type: Spontaneous
  Country: US (occurrence: US)
  Receive Date: 20151125
  Receipt Date: 20151130
  Transmission Date: 20160304
  Serious: Yes (Other)
  Sender: FDA-Public Use
  Company Number: US-PFIZER INC-2015404546

PATIENT
  Age: 88 Year
  Sex: Female

DRUGS (2)
  1. XANAX [Suspect]
     Active Substance: ALPRAZOLAM
     Dosage: UNK, DAILY
  2. XANAX [Suspect]
     Active Substance: ALPRAZOLAM
     Dosage: COUPLE OF TIMES A WEEK

REACTIONS (2)
  - Condition aggravated [Recovering/Resolving]
  - Impaired healing [Recovering/Resolving]
